FAERS Safety Report 6915981-1 (Version None)
Quarter: 2010Q3

REPORT INFORMATION
  Report Type: 
  Country: None (occurrence: None)
  Receive Date: 20100810
  Receipt Date: 20100804
  Transmission Date: 20110219
  Serious: Yes (Other)
  Sender: FDA-Public Use
  Company Number: US-B.I. PHARMACEUTICALS,INC./RIDGEFIELD-2010-BP-07424BP

PATIENT
  Sex: Female

DRUGS (2)
  1. SPIRIVA [Suspect]
     Indication: CHRONIC OBSTRUCTIVE PULMONARY DISEASE
     Dosage: 18 MCG
     Route: 055
     Dates: start: 20090701, end: 20100623
  2. ATROVENT HFA [Suspect]

REACTIONS (5)
  - CARDIAC FAILURE CONGESTIVE [None]
  - INFECTION [None]
  - NERVOUSNESS [None]
  - OEDEMA [None]
  - PRODUCTIVE COUGH [None]
